FAERS Safety Report 6545323-5 (Version None)
Quarter: 2010Q1

REPORT INFORMATION
  Report Type: 
  Country: None (occurrence: None)
  Receive Date: 20100121
  Receipt Date: 20100115
  Transmission Date: 20100710
  Serious: Yes (Hospitalization)
  Sender: FDA-Public Use
  Company Number: AU-MERCK-1001USA01436

PATIENT
  Age: 51 Year
  Sex: Female

DRUGS (3)
  1. SINGULAIR [Suspect]
     Route: 048
     Dates: start: 20090507, end: 20090513
  2. PREDNISOLON [Suspect]
     Route: 065
     Dates: start: 20090507
  3. ALBUTEROL [Concomitant]
     Route: 065

REACTIONS (4)
  - AGITATION [None]
  - HALLUCINATION [None]
  - PARANOIA [None]
  - SPEECH DISORDER [None]
